FAERS Safety Report 4960228-9 (Version None)
Quarter: 2006Q1

REPORT INFORMATION
  Report Type: 
  Country: None (occurrence: None)
  Receive Date: 20060328
  Receipt Date: 20051110
  Transmission Date: 20060701
  Serious: Yes (Other)
  Sender: FDA-Public Use
  Company Number: 2006027697

PATIENT
  Age: 63 Year
  Sex: Male

DRUGS (1)
  1. BEXTRA [Suspect]
     Indication: ILL-DEFINED DISORDER
     Dosage: 20 MG (20 MG, 1 IN 1 D),
     Dates: start: 20041006, end: 20050404

REACTIONS (10)
  - DRY EYE [None]
  - DRY MOUTH [None]
  - EXCORIATION [None]
  - FOLLICULITIS [None]
  - MYALGIA [None]
  - NEURODERMATITIS [None]
  - ONYCHOMADESIS [None]
  - PHOTOSENSITIVITY REACTION [None]
  - SEBORRHOEIC KERATOSIS [None]
  - TONGUE DRY [None]
